FAERS Safety Report 18877856 (Version 1)
Quarter: 2021Q1

REPORT INFORMATION
  Report Type: Spontaneous
  Country: US (occurrence: US)
  Receive Date: 20210210
  Receipt Date: 20210210
  Transmission Date: 20210420
  Serious: Yes (Hospitalization)
  Sender: FDA-Public Use
  Company Number: None

PATIENT
  Age: 42 Year
  Sex: Male

DRUGS (1)
  1. ACETAMINOPHEN/CODEINE/CODEINE (CODEINE 30MG/ACTEMINOPHEN 300MG TAB) [Suspect]
     Active Substance: ACETAMINOPHEN\CODEINE PHOSPHATE
     Indication: PAIN
     Route: 048
     Dates: start: 20210126, end: 20210201

REACTIONS (3)
  - Somnolence [None]
  - Dehydration [None]
  - Ileus [None]

NARRATIVE: CASE EVENT DATE: 20210130
